FAERS Safety Report 6102766-1 (Version None)
Quarter: 2009Q1

REPORT INFORMATION
  Report Type: 
  Country: None (occurrence: None)
  Receive Date: 20090304
  Receipt Date: 20090302
  Transmission Date: 20090719
  Serious: No
  Sender: FDA-Public Use
  Company Number: US-B.I. PHARMACEUTICALS,INC./RIDGEFIELD-2009-BP-02553BP

PATIENT
  Sex: Female

DRUGS (9)
  1. SPIRIVA [Suspect]
     Indication: EMPHYSEMA
     Dosage: 18MCG
     Route: 055
     Dates: start: 20070101, end: 20080101
  2. SPIRIVA [Suspect]
     Dosage: 18MCG
     Route: 055
     Dates: start: 20090201
  3. FOLIC ACID [Concomitant]
     Indication: SARCOIDOSIS
  4. VITAMIN B-12 [Concomitant]
     Indication: VITAMIN B12 DECREASED
  5. FOSIMAX [Concomitant]
     Indication: OSTEOPOROSIS
  6. FENLERT [Concomitant]
     Indication: OSTEOPOROSIS
  7. ASPIRIN [Concomitant]
     Indication: PROPHYLAXIS
  8. FISH OIL [Concomitant]
     Indication: DRY EYE
  9. CALCIUM [Concomitant]
     Indication: OSTEOPOROSIS

REACTIONS (3)
  - DRUG INEFFECTIVE [None]
  - DRY MOUTH [None]
  - DYSPHONIA [None]
